FAERS Safety Report 4976915-2 (Version None)
Quarter: 2006Q2

REPORT INFORMATION
  Report Type: 
  Country: None (occurrence: None)
  Receive Date: 20060412
  Receipt Date: 20060330
  Transmission Date: 20061013
  Serious: Yes (Other)
  Sender: FDA-Public Use
  Company Number: 2006RR-01895

PATIENT
  Age: 25 Year
  Sex: Female

DRUGS (1)
  1. MORPHINE SULFATE [Suspect]
     Indication: ANALGESIC EFFECT

REACTIONS (3)
  - PLACENTAL DISORDER [None]
  - PREMATURE LABOUR [None]
  - VASOCONSTRICTION [None]
